FAERS Safety Report 13959167 (Version 1)
Quarter: 2017Q3

REPORT INFORMATION
  Report Type: Spontaneous
  Country: US (occurrence: US)
  Receive Date: 20170911
  Receipt Date: 20170911
  Transmission Date: 20171128
  Serious: No
  Sender: FDA-Public Use
  Company Number: US-BEH-2017083487

PATIENT
  Sex: Female

DRUGS (1)
  1. PRIVIGEN [Suspect]
     Active Substance: HUMAN IMMUNOGLOBULIN G
     Indication: IMMUNODEFICIENCY COMMON VARIABLE
     Dosage: 15 G, QMT
     Route: 042
     Dates: start: 20170724

REACTIONS (3)
  - Photosensitivity reaction [Recovered/Resolved]
  - Migraine [Recovered/Resolved]
  - Musculoskeletal stiffness [Recovered/Resolved]
